FAERS Safety Report 9103190 (Version 2)
Quarter: 2013Q2

REPORT INFORMATION
  Report Type: Report from Study
  Country: DE (occurrence: DE)
  Receive Date: 20130219
  Receipt Date: 20130515
  Transmission Date: 20140414
  Serious: Yes (Other)
  Sender: FDA-Public Use
  Company Number: PHHO2013DE002655

PATIENT
  Age: 61 Year
  Sex: Male
  Weight: 106 kg

DRUGS (6)
  1. AMN107 [Suspect]
     Indication: CHRONIC MYELOID LEUKAEMIA
     Dosage: 300 MG, BID
     Route: 048
     Dates: start: 20110220, end: 20130213
  2. ACETYLSALICYLIC ACID [Concomitant]
     Dosage: 100 MG, UNK
     Dates: start: 201107
  3. ENALAPRIL [Concomitant]
     Dosage: 10 MG, UNK
  4. BISOPROLOL [Concomitant]
     Dosage: 0.75 MG, UNK
  5. PANTOPRAZOL [Concomitant]
     Dosage: 40 MG, UNK
     Dates: start: 201103
  6. PRAVASTATIN [Concomitant]
     Dosage: 20 MG, UNK
     Dates: start: 201107

REACTIONS (1)
  - Coronary artery restenosis [Not Recovered/Not Resolved]
